FAERS Safety Report 6177913-6 (Version None)
Quarter: 2009Q2

REPORT INFORMATION
  Report Type: 
  Country: None (occurrence: None)
  Receive Date: 20090504
  Receipt Date: 20090116
  Transmission Date: 20091009
  Serious: No
  Sender: FDA-Public Use
  Company Number: US-ALEXION-A200900045

PATIENT
  Sex: Female

DRUGS (5)
  1. SOLIRIS [Suspect]
     Indication: PAROXYSMAL NOCTURNAL HAEMOGLOBINURIA
     Dosage: 600 MG, UNK
     Route: 042
     Dates: start: 20080924
  2. SOLIRIS [Suspect]
     Dosage: 900 MG, Q2WK
     Route: 042
     Dates: start: 20081022
  3. FOLATE [Concomitant]
  4. WARFARIN [Concomitant]
  5. VICODIN [Suspect]
     Indication: HEADACHE
     Dosage: 5/500 MG, Q 4 HOURS PRN
     Route: 048
     Dates: start: 20090123

REACTIONS (1)
  - HEADACHE [None]
